FAERS Safety Report 4697081-7 (Version None)
Quarter: 2005Q2

REPORT INFORMATION
  Report Type: 
  Country: None (occurrence: None)
  Receive Date: 20050622
  Receipt Date: 20030410
  Transmission Date: 20051028
  Serious: Yes (Life-Threatening, Hospitalization, Other)
  Sender: FDA-Public Use
  Company Number: US-MERCK-0304USA01226

PATIENT
  Age: 40 Year
  Sex: Female
  Weight: 82 kg

DRUGS (8)
  1. ZOCOR [Suspect]
     Indication: HYPERLIPIDAEMIA
     Route: 048
     Dates: start: 20011228, end: 20020211
  2. MACROBID [Concomitant]
     Indication: URINARY TRACT INFECTION
     Route: 065
  3. ALLEGRA [Concomitant]
     Route: 065
     Dates: start: 20011217
  4. ESTROGENS (UNSPECIFIED) [Concomitant]
     Route: 065
  5. LEVAQUIN [Concomitant]
     Route: 065
     Dates: start: 20011217
  6. FLONASE [Concomitant]
     Route: 065
     Dates: start: 20011217
  7. LIPITOR [Concomitant]
     Indication: HYPERLIPIDAEMIA
     Route: 065
     Dates: start: 20011121, end: 20011227
  8. [THERAPY UNSPECIFIED] [Concomitant]
     Route: 065
     Dates: start: 20011217

REACTIONS (28)
  - ASTHENIA [None]
  - ASTHMA [None]
  - BACK PAIN [None]
  - BILE DUCT STENOSIS [None]
  - BLOOD PRESSURE DECREASED [None]
  - COUGH [None]
  - DEHYDRATION [None]
  - DIARRHOEA [None]
  - FATIGUE [None]
  - HAEMATOCHEZIA [None]
  - HEPATIC ENCEPHALOPATHY [None]
  - HEPATIC FAILURE [None]
  - HYPERTENSION [None]
  - HYPOGLYCAEMIA [None]
  - JAUNDICE [None]
  - LIVER FUNCTION TEST ABNORMAL [None]
  - LIVER TRANSPLANT [None]
  - LIVER TRANSPLANT REJECTION [None]
  - MUSCLE DISORDER [None]
  - MUSCLE SPASMS [None]
  - MYALGIA [None]
  - OVARIAN CYST [None]
  - POST COITAL BLEEDING [None]
  - RASH MACULO-PAPULAR [None]
  - RENAL FAILURE ACUTE [None]
  - RESPIRATORY DISORDER [None]
  - TREMOR [None]
  - URINARY TRACT INFECTION [None]
